FAERS Safety Report 8822374 (Version 2)
Quarter: 2012Q4

REPORT INFORMATION
  Report Type: 
  Country: CA (occurrence: CA)
  Receive Date: 20121003
  Receipt Date: 20121029
  Transmission Date: 20130627
  Serious: Yes (Hospitalization)
  Sender: FDA-Public Use
  Company Number: PHHY2012CA085657

PATIENT
  Age: 69 Year
  Sex: Female

DRUGS (2)
  1. ACLASTA [Suspect]
     Indication: OSTEOPOROSIS
     Route: 042
     Dates: start: 20111019
  2. ACLASTA [Suspect]
     Route: 042

REACTIONS (4)
  - Cerebrovascular accident [Recovering/Resolving]
  - Dysphagia [Unknown]
  - Speech disorder [Unknown]
  - Blood glucose increased [Unknown]
